FAERS Safety Report 21075568 (Version 1)
Quarter: 2022Q3

REPORT INFORMATION
  Report Type: Spontaneous
  Country: CA (occurrence: CA)
  Receive Date: 20220713
  Receipt Date: 20220713
  Transmission Date: 20221026
  Serious: Yes (Other)
  Sender: FDA-Public Use
  Company Number: CA-TEVA-2021-CA-1979995

PATIENT
  Age: 35 Week

DRUGS (2)
  1. ETOPOSIDE [Suspect]
     Active Substance: ETOPOSIDE
     Dosage: RECEIVED 4 OF THE PLANNED 4 CYCLES OF ADJUVANT THERAPY (CISPLATIN 20 MG/M2 AND ETOPOSIDE 100 MG/M2)
     Route: 064
  2. CISPLATIN [Suspect]
     Active Substance: CISPLATIN
     Dosage: RECEIVED 4 OF THE PLANNED 4 CYCLES OF ADJUVANT THERAPY (CISPLATIN 20 MG/M2 AND ETOPOSIDE 100 MG/M2)
     Route: 064

REACTIONS (3)
  - Premature baby [Unknown]
  - Foetal growth restriction [Recovering/Resolving]
  - Foetal exposure during pregnancy [Unknown]
